FAERS Safety Report 19282775 (Version 1)
Quarter: 2021Q2

REPORT INFORMATION
  Report Type: Spontaneous
  Country: US (occurrence: US)
  Receive Date: 20210520
  Receipt Date: 20210520
  Transmission Date: 20210717
  Serious: Yes (Other)
  Sender: FDA-Public Use
  Company Number: US-PFIZER INC-2021243990

PATIENT
  Age: 46 Year
  Sex: Female

DRUGS (1)
  1. CELEBREX [Suspect]
     Active Substance: CELECOXIB
     Indication: MULTIPLE SCLEROSIS
     Dosage: UNK

REACTIONS (6)
  - Chronic spontaneous urticaria [Unknown]
  - Angioedema [Unknown]
  - Mechanical urticaria [Unknown]
  - Condition aggravated [Unknown]
  - Off label use [Unknown]
  - Drug intolerance [Unknown]
